FAERS Safety Report 12689634 (Version 1)
Quarter: 2016Q3

REPORT INFORMATION
  Report Type: Spontaneous
  Country: US (occurrence: None)
  Receive Date: 20160825
  Receipt Date: 20160825
  Transmission Date: 20161109
  Serious: Yes (Hospitalization)
  Sender: FDA-Public Use
  Company Number: None

PATIENT
  Age: 47 Year
  Sex: Female
  Weight: 56.61 kg

DRUGS (17)
  1. PRILOSEC [Concomitant]
     Active Substance: OMEPRAZOLE MAGNESIUM
  2. FRAGMIN [Suspect]
     Active Substance: DALTEPARIN SODIUM
     Indication: THROMBOSIS
     Route: 058
     Dates: start: 20160514
  3. EMLA [Concomitant]
     Active Substance: LIDOCAINE\PRILOCAINE
  4. COMPAZINE [Concomitant]
     Active Substance: PROCHLORPERAZINE MALEATE
  5. NAVELBINE [Concomitant]
     Active Substance: VINORELBINE TARTRATE
  6. LIDODERM [Concomitant]
     Active Substance: LIDOCAINE
  7. LORAZEPAM. [Concomitant]
     Active Substance: LORAZEPAM
  8. SENOKOT-S [Concomitant]
     Active Substance: DOCUSATE SODIUM\SENNOSIDES
  9. VALIUM [Concomitant]
     Active Substance: DIAZEPAM
  10. MS CONTIN [Concomitant]
     Active Substance: MORPHINE SULFATE
  11. MELATONIN [Concomitant]
     Active Substance: MELATONIN
  12. VITAMIN C [Concomitant]
     Active Substance: ASCORBIC ACID
  13. CALCIUM [Concomitant]
     Active Substance: CALCIUM
  14. OXYCODONE [Concomitant]
     Active Substance: OXYCODONE
  15. VITAMIN D [Concomitant]
     Active Substance: CHOLECALCIFEROL
  16. ZOMETA [Concomitant]
     Active Substance: ZOLEDRONIC ACID
  17. MULTIVITAMINS [Concomitant]
     Active Substance: VITAMINS

REACTIONS (3)
  - Deep vein thrombosis [None]
  - Pathological fracture [None]
  - Femur fracture [None]

NARRATIVE: CASE EVENT DATE: 20160814
